FAERS Safety Report 10683842 (Version 1)
Quarter: 2014Q4

REPORT INFORMATION
  Report Type: Spontaneous
  Country: US (occurrence: US)
  Receive Date: 20141230
  Receipt Date: 20141230
  Transmission Date: 20150529
  Serious: No
  Sender: FDA-Public Use
  Company Number: US-GLAXOSMITHKLINE-US2014018102

PATIENT
  Age: 79 Year
  Sex: Female

DRUGS (2)
  1. NICODERM CQ [Suspect]
     Active Substance: NICOTINE
     Indication: SMOKING CESSATION THERAPY
     Dosage: 21 MG, UNK
     Route: 062
     Dates: start: 201408
  2. NICODERM CQ [Suspect]
     Active Substance: NICOTINE
     Dosage: 7 UNK, UNK
     Route: 062
     Dates: start: 201408

REACTIONS (2)
  - Abnormal dreams [Recovered/Resolved]
  - Drug ineffective [Unknown]
